FAERS Safety Report 5116722-3 (Version None)
Quarter: 2006Q3

REPORT INFORMATION
  Report Type: 
  Country: None (occurrence: None)
  Receive Date: 20060928
  Receipt Date: 20060918
  Transmission Date: 20061208
  Serious: Yes (Hospitalization)
  Sender: FDA-Public Use
  Company Number: PHRM2006FR02604

PATIENT
  Age: 84 Year
  Sex: Male
  Weight: 75 kg

DRUGS (8)
  1. ZOMETA [Suspect]
     Dosage: 4 MG, QMO
     Route: 042
     Dates: start: 20060801
  2. TIMOPTIC [Concomitant]
  3. ASPIRIN [Concomitant]
  4. PARACETAMOL [Concomitant]
  5. HYTACAND [Concomitant]
  6. ANANDRON [Concomitant]
  7. ZOCOR [Concomitant]
  8. DUPHALAC [Concomitant]

REACTIONS (8)
  - ACUTE CORONARY SYNDROME [None]
  - CARDIAC FAILURE ACUTE [None]
  - CONFUSIONAL STATE [None]
  - DYSPNOEA [None]
  - HEART RATE INCREASED [None]
  - HYPERTENSION [None]
  - PYREXIA [None]
  - TROPONIN INCREASED [None]
